FAERS Safety Report 9053842 (Version 2)
Quarter: 2013Q1

REPORT INFORMATION
  Report Type: Report from Study
  Country: JP (occurrence: JP)
  Receive Date: 20130207
  Receipt Date: 20130311
  Transmission Date: 20140127
  Serious: Yes (Other)
  Sender: FDA-Public Use
  Company Number: JP-GLAXOSMITHKLINE-B0865186A

PATIENT
  Age: 72 None
  Sex: Male
  Weight: 53 kg

DRUGS (2)
  1. AVOLVE [Suspect]
     Indication: BENIGN PROSTATIC HYPERPLASIA
     Dosage: .5MG PER DAY
     Route: 048
     Dates: start: 20110622, end: 20110926
  2. FLIVAS [Concomitant]
     Indication: BENIGN PROSTATIC HYPERPLASIA
     Route: 048
     Dates: end: 20110927

REACTIONS (1)
  - Urinary retention [Recovered/Resolved]
